FAERS Safety Report 11951036 (Version 1)
Quarter: 2016Q1

REPORT INFORMATION
  Report Type: Spontaneous
  Country: JP (occurrence: JP)
  Receive Date: 20160126
  Receipt Date: 20160126
  Transmission Date: 20160526
  Serious: Yes (Hospitalization)
  Sender: FDA-Public Use
  Company Number: JP-BAYER-2016-008602

PATIENT
  Age: 21 Year
  Sex: Male

DRUGS (3)
  1. ACETYLSALICYLIC ACID({=100 MG) [Suspect]
     Active Substance: ASPIRIN
     Indication: CEREBROVASCULAR ACCIDENT PROPHYLAXIS
     Route: 048
  2. BETAINE [Concomitant]
     Active Substance: BETAINE
     Dosage: DAILY DOSE 5 G
     Route: 048
  3. BETAINE [Concomitant]
     Active Substance: BETAINE
     Route: 048

REACTIONS (1)
  - Headache [None]
